FAERS Safety Report 5498613-1 (Version None)
Quarter: 2007Q4

REPORT INFORMATION
  Report Type: 
  Country: None (occurrence: None)
  Receive Date: 20071026
  Receipt Date: 20071017
  Transmission Date: 20080405
  Serious: Yes (Other)
  Sender: FDA-Public Use
  Company Number: PHHO2007BR16525

PATIENT
  Age: 68 Year
  Sex: Female
  Weight: 83 kg

DRUGS (6)
  1. DIOVAN HCT [Suspect]
     Indication: HYPERTENSION
     Dosage: 160/25MG DAILY
     Route: 048
     Dates: start: 20030101
  2. PROPRANOLOL [Concomitant]
     Dosage: UNK, UNK
     Dates: start: 20040101
  3. ASPIRIN [Concomitant]
     Dosage: UNK, UNK
     Dates: start: 20070401
  4. VENLAFAXINE HCL [Concomitant]
     Dosage: UNK, UNK
     Dates: start: 20061101
  5. RISETRONATE SODIUM [Concomitant]
     Dosage: UNK, UNK
     Dates: start: 20070201
  6. LIPITOR [Concomitant]
     Dosage: UNK, UNK
     Dates: start: 20070401

REACTIONS (5)
  - ARRHYTHMIA [None]
  - BLOOD PRESSURE INCREASED [None]
  - CHEST PAIN [None]
  - ELECTROCARDIOGRAM ABNORMAL [None]
  - VENOUS OCCLUSION [None]
